FAERS Safety Report 22325295 (Version 1)
Quarter: 2023Q2

REPORT INFORMATION
  Report Type: Other
  Country: None (occurrence: CN)
  Receive Date: 20230516
  Receipt Date: 20230516
  Transmission Date: 20230721
  Serious: Yes (Life-Threatening)
  Sender: FDA-Public Use
  Company Number: CN-B.Braun Medical Inc.-2141513

PATIENT
  Age: 3 Year
  Sex: Male

DRUGS (3)
  1. DEXTROSE [Suspect]
     Active Substance: DEXTROSE\DEXTROSE MONOHYDRATE
     Indication: Hypoglycaemia
  2. DIAZEPAM [Concomitant]
     Active Substance: DIAZEPAM
  3. CHLORAL HYDRATE [Concomitant]
     Active Substance: CHLORAL HYDRATE

REACTIONS (1)
  - Drug ineffective [Unknown]
